FAERS Safety Report 9231401 (Version 5)
Quarter: 2013Q3

REPORT INFORMATION
  Report Type: Report from Study
  Country: RU (occurrence: RU)
  Receive Date: 20130415
  Receipt Date: 20130924
  Transmission Date: 20140515
  Serious: Yes (Hospitalization)
  Sender: FDA-Public Use
  Company Number: RU-ROCHE-1213929

PATIENT
  Age: 60 Year
  Sex: Male

DRUGS (3)
  1. PEG-INTERFERON ALFA 2A [Suspect]
     Indication: CHRONIC HEPATITIS C
     Dosage: LAST DOSE PRIOR TO SAE ON 15/MAR/2013
     Route: 058
     Dates: start: 20120929
  2. RIBAVIRIN [Suspect]
     Indication: CHRONIC HEPATITIS C
     Dosage: AST DOSE PRIOR TO SAE ON 15/MAR/2013
     Route: 048
     Dates: start: 20120929
  3. TELAPREVIR [Suspect]
     Indication: CHRONIC HEPATITIS C
     Dosage: LAST DOSE PRIOR TO SAE 21/DEC/2012
     Route: 048
     Dates: start: 20120929

REACTIONS (1)
  - Diabetes mellitus [Not Recovered/Not Resolved]
